FAERS Safety Report 4657772-0 (Version None)
Quarter: 2005Q2

REPORT INFORMATION
  Report Type: 
  Country: None (occurrence: None)
  Receive Date: 20050510
  Receipt Date: 20050426
  Transmission Date: 20051028
  Serious: Yes (Life-Threatening, Hospitalization)
  Sender: FDA-Public Use
  Company Number: 2004-07-0313

PATIENT
  Age: 67 Year
  Sex: Male

DRUGS (5)
  1. ACETYL SALICYLIC ACID USP BAT [Suspect]
     Dates: start: 20040707
  2. HEPARIN [Suspect]
     Dosage: 5000U SEE DOSAGE TEXT
     Route: 042
     Dates: start: 20040707
  3. LOVENOX [Suspect]
     Dosage: 1MGK SEE DOSAGE TEXT
     Route: 058
     Dates: start: 20040707, end: 20040707
  4. NITROGLYCERIN [Suspect]
     Route: 022
     Dates: start: 20040707, end: 20040707
  5. INTEGRILIN [Concomitant]
     Indication: THERAPEUTIC PROCEDURE
     Route: 042
     Dates: start: 20040707, end: 20040707

REACTIONS (3)
  - CEREBROVASCULAR ACCIDENT [None]
  - DYSARTHRIA [None]
  - HYPOTENSION [None]
